FAERS Safety Report 6908572-X (Version None)
Quarter: 2010Q3

REPORT INFORMATION
  Report Type: 
  Country: None (occurrence: None)
  Receive Date: 20100708
  Receipt Date: 20100114
  Transmission Date: 20110219
  Serious: Yes (Death)
  Sender: FDA-Public Use
  Company Number: 2008009018

PATIENT
  Age: 58 Year
  Sex: Male
  Weight: 91 kg

DRUGS (1)
  1. CHANTIX [Suspect]
     Dosage: ORAL
     Route: 048
     Dates: start: 20070901

REACTIONS (1)
  - COMPLETED SUICIDE [None]
